FAERS Safety Report 19784580 (Version 1)
Quarter: 2021Q3

REPORT INFORMATION
  Report Type: Spontaneous
  Country: US (occurrence: US)
  Receive Date: 20210901
  Receipt Date: 20210901
  Transmission Date: 20211014
  Serious: Yes (Hospitalization)
  Sender: FDA-Public Use
  Company Number: None

PATIENT
  Age: 29 Year
  Sex: Female

DRUGS (1)
  1. KESIMPTA [Suspect]
     Active Substance: OFATUMUMAB
     Dosage: ?          OTHER FREQUENCY:N/A;?
     Route: 058
     Dates: start: 202102

REACTIONS (4)
  - Herpes zoster [None]
  - Fungal infection [None]
  - Skin infection [None]
  - Visual impairment [None]

NARRATIVE: CASE EVENT DATE: 20210817
